APPROVED DRUG PRODUCT: BUDESONIDE
Active Ingredient: BUDESONIDE
Strength: 0.5MG/2ML
Dosage Form/Route: SUSPENSION;INHALATION
Application: A078202 | Product #002 | TE Code: AN
Applicant: NEPHRON PHARMACEUTICALS CORPORATION
Approved: Mar 30, 2009 | RLD: No | RS: No | Type: RX